FAERS Safety Report 12183045 (Version 3)
Quarter: 2016Q3

REPORT INFORMATION
  Report Type: Spontaneous
  Country: BE (occurrence: BE)
  Receive Date: 20160316
  Receipt Date: 20160907
  Transmission Date: 20161109
  Serious: Yes (Other)
  Sender: FDA-Public Use
  Company Number: BE-009507513-1602BEL001398

PATIENT
  Age: 16 Year
  Sex: Female
  Weight: 52.5 kg

DRUGS (1)
  1. IMPLANON [Suspect]
     Active Substance: ETONOGESTREL
     Dosage: UNK, IN RIGHT ARM
     Route: 059
     Dates: start: 20140508

REACTIONS (3)
  - Device embolisation [Not Recovered/Not Resolved]
  - Complication associated with device [Recovered/Resolved]
  - Pulmonary infarction [Unknown]

NARRATIVE: CASE EVENT DATE: 20150208
